FAERS Safety Report 19400655 (Version 5)
Quarter: 2022Q1

REPORT INFORMATION
  Report Type: Spontaneous
  Country: JO (occurrence: JO)
  Receive Date: 20210610
  Receipt Date: 20220215
  Transmission Date: 20220423
  Serious: Yes (Hospitalization)
  Sender: FDA-Public Use
  Company Number: JO-BIOGEN-2021BI01018967

PATIENT
  Age: 25 Year
  Sex: Male
  Weight: 75 kg

DRUGS (1)
  1. TYSABRI [Suspect]
     Active Substance: NATALIZUMAB
     Indication: Multiple sclerosis
     Dosage: 23 INFUSIONS
     Route: 042
     Dates: start: 20181001, end: 20210401

REACTIONS (3)
  - Multiple sclerosis relapse [Recovered/Resolved]
  - Progressive multifocal leukoencephalopathy [Not Recovered/Not Resolved]
  - Prescribed underdose [Recovered/Resolved]

NARRATIVE: CASE EVENT DATE: 20181001
